FAERS Safety Report 7771958-8 (Version None)
Quarter: 2011Q3

REPORT INFORMATION
  Report Type: 
  Country: None (occurrence: None)
  Receive Date: 20110922
  Receipt Date: 20110121
  Transmission Date: 20111222
  Serious: Yes (Other)
  Sender: FDA-Public Use
  Company Number: US-ASTRAZENECA-2007UW11486

PATIENT
  Age: 22284 Day
  Sex: Male
  Weight: 98.9 kg

DRUGS (23)
  1. ULTRAM [Concomitant]
  2. LEVAQUIN [Concomitant]
  3. RISPERDAL [Concomitant]
     Dates: start: 20020510
  4. LORAZEPAM [Concomitant]
  5. SEROQUEL [Suspect]
     Dosage: 100 - 300 MG
     Route: 048
     Dates: start: 20040701
  6. CECLOR [Concomitant]
  7. RISPERDAL [Concomitant]
     Dates: start: 20020606
  8. ENALAPRIL MALEATE [Concomitant]
  9. BUSPAR [Concomitant]
  10. ZYPREXA [Concomitant]
     Dosage: 5 MG TO 20 MG
  11. ALPRAZOLAM [Concomitant]
  12. SEROQUEL [Suspect]
     Indication: SLEEP DISORDER
     Dosage: 300 MG 100 MG
     Route: 048
     Dates: start: 19980101
  13. SEROQUEL [Suspect]
     Route: 048
     Dates: start: 20040715
  14. VIAGRA [Concomitant]
  15. TOPROL-XL [Concomitant]
  16. SEROQUEL [Suspect]
     Indication: MAJOR DEPRESSION
     Dosage: 300 MG 100 MG
     Route: 048
     Dates: start: 19980101
  17. CELEXA [Concomitant]
  18. SPIRONOLACTONE [Concomitant]
  19. SEROQUEL [Suspect]
     Dosage: 100 - 300 MG
     Route: 048
     Dates: start: 20040701
  20. SEROQUEL [Suspect]
     Route: 048
     Dates: start: 20040715
  21. DESIPRAMIDE HCL [Concomitant]
  22. HYDROXYZINE PAM [Concomitant]
  23. HALOPERIDOL [Concomitant]

REACTIONS (2)
  - ERECTILE DYSFUNCTION [None]
  - TYPE 2 DIABETES MELLITUS [None]
